FAERS Safety Report 10260098 (Version 1)
Quarter: 2014Q2

REPORT INFORMATION
  Report Type: Spontaneous
  Country: US (occurrence: US)
  Receive Date: 20140625
  Receipt Date: 20140625
  Transmission Date: 20141212
  Serious: No
  Sender: FDA-Public Use
  Company Number: US-GALDERMA-US13002561

PATIENT
  Age: 19 Year
  Sex: Male

DRUGS (2)
  1. DIFFERIN (ADAPALENE) CREAM, 0.1% [Suspect]
     Indication: ACNE
     Route: 061
     Dates: start: 201306
  2. NEUTROGENA BENZOYL PEROXIDE CLEANSER [Suspect]
     Indication: THERAPEUTIC SKIN CARE TOPICAL
     Route: 061
     Dates: start: 201306

REACTIONS (4)
  - Acne [Not Recovered/Not Resolved]
  - Skin exfoliation [Not Recovered/Not Resolved]
  - Dry skin [Not Recovered/Not Resolved]
  - Drug ineffective [Not Recovered/Not Resolved]
